FAERS Safety Report 11227661 (Version 1)
Quarter: 2015Q2

REPORT INFORMATION
  Report Type: Spontaneous
  Country: US (occurrence: None)
  Receive Date: 20150626
  Receipt Date: 20150626
  Transmission Date: 20150821
  Serious: Yes (Life-Threatening, Hospitalization)
  Sender: FDA-Public Use
  Company Number: None

PATIENT
  Age: 60 Year
  Sex: Male
  Weight: 104.33 kg

DRUGS (4)
  1. XARELTO [Suspect]
     Active Substance: RIVAROXABAN
     Indication: THROMBOSIS
     Dosage: ONCE DAILY, TAKEN BY MOUTH
     Route: 048
     Dates: start: 20150428, end: 20150512
  2. XARELTO [Suspect]
     Active Substance: RIVAROXABAN
     Indication: PULMONARY THROMBOSIS
     Dosage: ONCE DAILY, TAKEN BY MOUTH
     Route: 048
     Dates: start: 20150428, end: 20150512
  3. XARELTO [Suspect]
     Active Substance: RIVAROXABAN
     Indication: FOOT FRACTURE
     Dosage: ONCE DAILY, TAKEN BY MOUTH
     Route: 048
     Dates: start: 20150428, end: 20150512
  4. LOVENOX [Concomitant]
     Active Substance: ENOXAPARIN SODIUM

REACTIONS (6)
  - Oropharyngeal pain [None]
  - Urticaria [None]
  - Pain of skin [None]
  - Stomatitis [None]
  - Rash generalised [None]
  - Stevens-Johnson syndrome [None]

NARRATIVE: CASE EVENT DATE: 20150428
